FAERS Safety Report 9015904 (Version 1)
Quarter: 2013Q1

REPORT INFORMATION
  Report Type: Spontaneous
  Country: US (occurrence: US)
  Receive Date: 20130116
  Receipt Date: 20130116
  Transmission Date: 20140127
  Serious: Yes (Hospitalization, Other)
  Sender: FDA-Public Use
  Company Number: US-ASTRAZENECA-2013SE02196

PATIENT
  Age: 55 Year
  Sex: Female
  Weight: 55.8 kg

DRUGS (7)
  1. NEXIUM [Suspect]
     Indication: GASTROOESOPHAGEAL REFLUX DISEASE
     Route: 048
     Dates: start: 2003
  2. SPIRONOLACTONE [Concomitant]
     Dates: start: 201206
  3. HYDROMORPHONE [Concomitant]
     Dates: start: 201206
  4. CYCLOBENZAPRINE [Concomitant]
     Dates: start: 201206
  5. FOLIC ACID [Concomitant]
     Dates: start: 2008
  6. CREON DR [Concomitant]
     Dosage: 2400 U, TID
     Dates: start: 201204
  7. KLORCON ER [Concomitant]
     Dates: start: 2007

REACTIONS (8)
  - Cholelithiasis [Recovering/Resolving]
  - Pancreatitis [Not Recovered/Not Resolved]
  - Pseudocyst [Recovering/Resolving]
  - Liver disorder [Not Recovered/Not Resolved]
  - Diabetes mellitus [Not Recovered/Not Resolved]
  - Blood potassium decreased [Not Recovered/Not Resolved]
  - Sleep disorder due to a general medical condition [Not Recovered/Not Resolved]
  - Weight fluctuation [Recovering/Resolving]
